FAERS Safety Report 16423041 (Version 2)
Quarter: 2019Q2

REPORT INFORMATION
  Report Type: Spontaneous
  Country: BR (occurrence: BR)
  Receive Date: 20190612
  Receipt Date: 20190624
  Transmission Date: 20190711
  Serious: Yes (Hospitalization, Other)
  Sender: FDA-Public Use
  Company Number: BR-BRISTOL-MYERS SQUIBB COMPANY-BMS-2019-055938

PATIENT
  Age: 57 Year
  Sex: Female

DRUGS (6)
  1. CLOPAM [CLONAZEPAM] [Concomitant]
     Indication: SLEEP DISORDER
     Dosage: 2 TAB, QHS
     Route: 048
  2. GLIFAGE XR [Suspect]
     Active Substance: METFORMIN HYDROCHLORIDE
     Indication: DIABETES MELLITUS
     Dosage: 1 TAB, QD (MORNING)
     Route: 065
     Dates: start: 2006
  3. DIAMICRON [Concomitant]
     Active Substance: GLICLAZIDE
     Indication: DIABETES MELLITUS
     Dosage: 30 MILLIGRAM, QD
     Route: 065
  4. DIAMICRON [Concomitant]
     Active Substance: GLICLAZIDE
     Indication: PRODUCT USED FOR UNKNOWN INDICATION
     Dosage: 60 MILLIGRAM, QD (AFTER BREAKFAST)
     Route: 065
  5. GLIFAGE XR [Suspect]
     Active Substance: METFORMIN HYDROCHLORIDE
     Indication: PRODUCT USED FOR UNKNOWN INDICATION
     Dosage: 2 TAB, QD (NIGHT)
     Route: 065
     Dates: start: 2006
  6. INSULIN [Concomitant]
     Active Substance: INSULIN NOS
     Indication: DIABETES MELLITUS
     Dosage: UNK
     Route: 065

REACTIONS (15)
  - Blood glucose abnormal [Unknown]
  - Fall [Unknown]
  - Insomnia [Unknown]
  - Thyroid size decreased [Unknown]
  - Tremor [Unknown]
  - Anal fissure [Unknown]
  - Gait disturbance [Unknown]
  - Renal disorder [Recovering/Resolving]
  - Myositis [Unknown]
  - Nephrolithiasis [Recovering/Resolving]
  - Nervousness [Unknown]
  - Hallucination, auditory [Unknown]
  - Spinal pain [Unknown]
  - Syncope [Unknown]
  - Vulval laceration [Unknown]

NARRATIVE: CASE EVENT DATE: 2006
